FAERS Safety Report 25449692 (Version 2)
Quarter: 2025Q3

REPORT INFORMATION
  Report Type: Spontaneous
  Country: US (occurrence: US)
  Receive Date: 20250618
  Receipt Date: 20250717
  Transmission Date: 20251021
  Serious: No
  Sender: LEO PHARM
  Company Number: US-LEO Pharma-380714

PATIENT
  Age: 69 Year
  Sex: Female

DRUGS (1)
  1. ADBRY [Suspect]
     Active Substance: TRALOKINUMAB-LDRM
     Indication: Dermatitis
     Dosage: TREATMENT IS ONGOING
     Route: 058
     Dates: start: 202505

REACTIONS (4)
  - Dermatitis atopic [Recovered/Resolved]
  - Malaise [Unknown]
  - Fatigue [Unknown]
  - Pruritus [Recovered/Resolved]
